FAERS Safety Report 8978443 (Version 1)
Quarter: 2012Q4

REPORT INFORMATION
  Report Type: 
  Country: US (occurrence: US)
  Receive Date: 20121221
  Receipt Date: 20121221
  Transmission Date: 20130627
  Serious: Yes (Hospitalization)
  Sender: FDA-Public Use
  Company Number: US-BRISTOL-MYERS SQUIBB COMPANY-17205667

PATIENT
  Age: 58 Year
  Sex: Male

DRUGS (3)
  1. REYATAZ [Suspect]
     Dosage: medication withheld for 3 days.
     Route: 048
  2. EPIVIR [Concomitant]
     Route: 048
  3. DAPSONE [Concomitant]
     Route: 048

REACTIONS (1)
  - Idiopathic thrombocytopenic purpura [Recovering/Resolving]
